FAERS Safety Report 6375686-5 (Version None)
Quarter: 2009Q3

REPORT INFORMATION
  Report Type: 
  Country: None (occurrence: None)
  Receive Date: 20090922
  Receipt Date: 20090922
  Transmission Date: 20100115
  Serious: Yes (Hospitalization, Disabling)
  Sender: FDA-Public Use
  Company Number: None

PATIENT
  Age: 66 Year
  Sex: Male

DRUGS (2)
  1. LOVENOX [Suspect]
     Indication: CEREBROVASCULAR ACCIDENT
     Dosage: 1 MG/KG Q12H SQ
     Route: 058
     Dates: start: 20090530, end: 20090602
  2. WARFARIN [Suspect]
     Indication: CEREBROVASCULAR ACCIDENT
     Dosage: 5 MG QDAY PO
     Route: 048
     Dates: start: 20090530, end: 20090602

REACTIONS (3)
  - INJECTION SITE HAEMORRHAGE [None]
  - INTERNATIONAL NORMALISED RATIO DECREASED [None]
  - SKIN HAEMORRHAGE [None]
